FAERS Safety Report 19684288 (Version 1)
Quarter: 2021Q3

REPORT INFORMATION
  Report Type: Spontaneous
  Country: US (occurrence: US)
  Receive Date: 20210810
  Receipt Date: 20210810
  Transmission Date: 20211014
  Serious: No
  Sender: FDA-Public Use
  Company Number: None

PATIENT
  Age: 31 Year
  Sex: Female
  Weight: 91.3 kg

DRUGS (2)
  1. DEXAMETHASONE. [Concomitant]
     Active Substance: DEXAMETHASONE
     Dates: start: 20210719, end: 20210806
  2. ACTEMRA [Suspect]
     Active Substance: TOCILIZUMAB
     Indication: COVID-19 PNEUMONIA
     Dosage: ?          OTHER FREQUENCY:ONCE;?
     Route: 040
     Dates: start: 20210719, end: 20210719

REACTIONS (5)
  - Pneumoperitoneum [None]
  - Blood lactic acid increased [None]
  - Pulmonary embolism [None]
  - Large intestine perforation [None]
  - Pyrexia [None]

NARRATIVE: CASE EVENT DATE: 20210726
